FAERS Safety Report 18872958 (Version 3)
Quarter: 2022Q3

REPORT INFORMATION
  Report Type: Spontaneous
  Country: CA (occurrence: None)
  Receive Date: 20210210
  Receipt Date: 20220811
  Transmission Date: 20221027
  Serious: Yes (Hospitalization)
  Sender: FDA-Public Use
  Company Number: CA-ROCHE-2765419

PATIENT
  Age: 52 Year
  Sex: Male

DRUGS (6)
  1. CLONAZEPAM [Suspect]
     Active Substance: CLONAZEPAM
     Indication: Product used for unknown indication
     Route: 048
  2. OMALIZUMAB [Suspect]
     Active Substance: OMALIZUMAB
     Indication: Asthma
     Route: 058
  3. OMALIZUMAB [Suspect]
     Active Substance: OMALIZUMAB
     Route: 058
  4. OMALIZUMAB [Suspect]
     Active Substance: OMALIZUMAB
     Route: 058
  5. OMALIZUMAB [Suspect]
     Active Substance: OMALIZUMAB
     Route: 058
  6. OMALIZUMAB [Suspect]
     Active Substance: OMALIZUMAB
     Route: 058

REACTIONS (12)
  - Asthma [Not Recovered/Not Resolved]
  - Cough [Not Recovered/Not Resolved]
  - Dizziness [Not Recovered/Not Resolved]
  - Drug hypersensitivity [Not Recovered/Not Resolved]
  - Herpes zoster [Not Recovered/Not Resolved]
  - Hyperhidrosis [Not Recovered/Not Resolved]
  - Influenza [Not Recovered/Not Resolved]
  - Malaise [Not Recovered/Not Resolved]
  - Nasopharyngitis [Not Recovered/Not Resolved]
  - Illness [Not Recovered/Not Resolved]
  - Product dose omission issue [Unknown]
  - Sinus disorder [Not Recovered/Not Resolved]
